FAERS Safety Report 10006713 (Version 2)
Quarter: 2014Q2

REPORT INFORMATION
  Report Type: Spontaneous
  Country: US (occurrence: US)
  Receive Date: 20140313
  Receipt Date: 20140513
  Transmission Date: 20141212
  Serious: No
  Sender: FDA-Public Use
  Company Number: US-PFIZER INC-2014068640

PATIENT
  Age: 46 Year
  Sex: Male
  Weight: 73.5 kg

DRUGS (1)
  1. DEPO-TESTOSTERONE [Suspect]
     Indication: BLOOD TESTOSTERONE DECREASED
     Dosage: 450 ML, WEEKLY
     Dates: start: 2009

REACTIONS (5)
  - Drug ineffective [Unknown]
  - Nasopharyngitis [Unknown]
  - Malaise [Unknown]
  - Libido decreased [Unknown]
  - Product quality issue [Unknown]
